FAERS Safety Report 5175216-X (Version None)
Quarter: 2006Q4

REPORT INFORMATION
  Report Type: 
  Country: None (occurrence: None)
  Receive Date: 20061206
  Receipt Date: 20061130
  Transmission Date: 20070319
  Serious: Yes (Death)
  Sender: FDA-Public Use
  Company Number: GB-2006-024558

PATIENT
  Sex: 0

DRUGS (1)
  1. ULTRAVIST (PHARMACY BULK) [Suspect]
     Indication: COMPUTERISED TOMOGRAM

REACTIONS (2)
  - CONDITION AGGRAVATED [None]
  - RENAL FAILURE [None]
